FAERS Safety Report 20184804 (Version 2)
Quarter: 2022Q3

REPORT INFORMATION
  Report Type: Spontaneous
  Country: FR (occurrence: FR)
  Receive Date: 20211214
  Receipt Date: 20220722
  Transmission Date: 20221026
  Serious: Yes (Hospitalization)
  Sender: FDA-Public Use
  Company Number: FR-SUN PHARMACEUTICAL INDUSTRIES LTD-2021RR-320170

PATIENT
  Age: 77 Year
  Sex: Male

DRUGS (3)
  1. CLOPIDOGREL [Interacting]
     Active Substance: CLOPIDOGREL BISULFATE
     Indication: Coronary artery thrombosis
     Dosage: 75 MILLIGRAM, UNK
     Route: 048
     Dates: start: 2018, end: 20210619
  2. ASPIRIN [Interacting]
     Active Substance: ASPIRIN
     Indication: Coronary artery thrombosis
     Dosage: 100 MILLIGRAM, UNK
     Route: 048
     Dates: start: 2018, end: 20210619
  3. FLUINDIONE [Interacting]
     Active Substance: FLUINDIONE
     Indication: Coronary artery thrombosis
     Dosage: 20 MILLIGRAM, DAILY
     Route: 048
     Dates: start: 2018, end: 20210619

REACTIONS (1)
  - Cerebral haematoma [Recovered/Resolved]

NARRATIVE: CASE EVENT DATE: 20210619
